FAERS Safety Report 11896385 (Version 1)
Quarter: 2016Q1

REPORT INFORMATION
  Report Type: Spontaneous
  Country: US (occurrence: US)
  Receive Date: 20160107
  Receipt Date: 20160107
  Transmission Date: 20160526
  Serious: Yes (Hospitalization)
  Sender: FDA-Public Use
  Company Number: US-MYLANLABS-2016M1000407

PATIENT

DRUGS (1)
  1. ZOLEDRONIC ACID [Suspect]
     Active Substance: ZOLEDRONIC ACID
     Indication: PRODUCT USED FOR UNKNOWN INDICATION
     Dosage: 6 DOSES OF 4MG/M2, ADMINISTERED MONTHLY
     Route: 065

REACTIONS (5)
  - Hypophosphataemia [Unknown]
  - Hyperkalaemia [Unknown]
  - Influenza [Unknown]
  - Pneumonia [Unknown]
  - Hypocalcaemia [Unknown]
